FAERS Safety Report 8155422-2 (Version None)
Quarter: 2012Q1

REPORT INFORMATION
  Report Type: 
  Country: None (occurrence: None)
  Receive Date: 20120207
  Receipt Date: 20120130
  Transmission Date: 20120608
  Serious: Yes (Other)
  Sender: FDA-Public Use
  Company Number: 2012030973

PATIENT
  Sex: Male

DRUGS (1)
  1. SANDOGLOBULIN [Suspect]
     Indication: CHRONIC INFLAMMATORY DEMYELINATING POLYRADICULONEUROPATHY
     Route: 042
     Dates: start: 20000101

REACTIONS (2)
  - OFF LABEL USE [None]
  - DEEP VEIN THROMBOSIS [None]
